FAERS Safety Report 7001425-0 (Version None)
Quarter: 2010Q3

REPORT INFORMATION
  Report Type: 
  Country: None (occurrence: None)
  Receive Date: 20100920
  Receipt Date: 20091022
  Transmission Date: 20110219
  Serious: No
  Sender: FDA-Public Use
  Company Number: US-ASTRAZENECA-2009SE21885

PATIENT
  Age: 33 Year
  Sex: Male
  Weight: 74.8 kg

DRUGS (4)
  1. SEROQUEL XR [Suspect]
     Indication: DEPRESSION
     Route: 048
     Dates: start: 20080101
  2. SEROQUEL XR [Suspect]
     Indication: BIPOLAR DISORDER
     Route: 048
     Dates: start: 20080101
  3. ADDERALL 10 [Concomitant]
  4. WELLBUTRIN [Concomitant]

REACTIONS (2)
  - PERSONALITY CHANGE [None]
  - WRONG TECHNIQUE IN DRUG USAGE PROCESS [None]
